FAERS Safety Report 8643042 (Version 2)
Quarter: 2012Q4

REPORT INFORMATION
  Report Type: 
  Country: US (occurrence: US)
  Receive Date: 20120629
  Receipt Date: 20121106
  Transmission Date: 20130627
  Serious: Yes (Other)
  Sender: FDA-Public Use
  Company Number: US-BAYER-2012-064062

PATIENT
  Age: 38 Year
  Sex: Female
  Weight: 89.8 kg

DRUGS (15)
  1. YASMIN [Suspect]
     Indication: MENSTRUAL CYCLE MANAGEMENT
     Dosage: UNK
     Dates: start: 20071004, end: 201006
  2. YAZ [Suspect]
     Indication: MENSTRUAL CYCLE MANAGEMENT
     Dosage: UNK
     Dates: start: 20050404, end: 200510
  3. YAZ [Suspect]
     Indication: MENORRHAGIA
  4. FLUOXETINE [Concomitant]
     Indication: DEPRESSION
  5. WELLBUTRIN [Concomitant]
     Indication: ANXIETY
  6. PANTOPRAZOLE [Concomitant]
     Indication: ACID REFLUX (OESOPHAGEAL)
     Dosage: UNK
     Dates: start: 20090925
  7. PANTOPRAZOLE [Concomitant]
     Indication: ACID REFLUX (OESOPHAGEAL)
     Dosage: UNK
     Dates: start: 20091025
  8. BENZONATATE [Concomitant]
     Dosage: UNK
     Dates: start: 20091212
  9. CARAFATE [Concomitant]
     Dosage: UNK
     Dates: start: 20091214
  10. KAPIDEX [Concomitant]
     Indication: ACID REFLUX (OESOPHAGEAL)
  11. MULTIVITAMIN [Concomitant]
  12. PROTONIX [Concomitant]
  13. LEVAQUIN [Concomitant]
  14. PERCOCET [Concomitant]
  15. AMBIEN [Concomitant]

REACTIONS (9)
  - Cholelithiasis [None]
  - Cholecystitis chronic [None]
  - Hepatic lesion [None]
  - Injury [None]
  - Pain [None]
  - Abdominal pain upper [None]
  - Nausea [None]
  - Blood disorder [None]
  - Vomiting [None]
